FAERS Safety Report 12752925 (Version 1)
Quarter: 2016Q3

REPORT INFORMATION
  Report Type: Spontaneous
  Country: US (occurrence: US)
  Receive Date: 20160916
  Receipt Date: 20160916
  Transmission Date: 20161109
  Serious: Yes (Other)
  Sender: FDA-Public Use
  Company Number: None

PATIENT
  Age: 44 Year
  Sex: Female
  Weight: 99 kg

DRUGS (2)
  1. JOHNSONS BABY POWDER [Suspect]
     Active Substance: TALC
     Indication: THERAPEUTIC SKIN CARE TOPICAL
     Route: 061
     Dates: start: 197907, end: 2014
  2. SHOWER TO SHOWER TALCUM POWDER [Suspect]
     Active Substance: TALC
     Indication: THERAPEUTIC SKIN CARE TOPICAL
     Route: 061
     Dates: start: 197907, end: 2014

REACTIONS (3)
  - Skin mass [None]
  - Ovarian cancer metastatic [None]
  - Ovarian cancer [None]

NARRATIVE: CASE EVENT DATE: 20080714
